FAERS Safety Report 12780356 (Version 3)
Quarter: 2017Q1

REPORT INFORMATION
  Report Type: Report from Study
  Country: US (occurrence: US)
  Receive Date: 20160926
  Receipt Date: 20170120
  Transmission Date: 20170428
  Serious: Yes (Other)
  Sender: FDA-Public Use
  Company Number: US-BAYER-2016-183145

PATIENT
  Age: 82 Year
  Sex: Female
  Weight: 77.69 kg

DRUGS (4)
  1. SILDENAFIL. [Concomitant]
     Active Substance: SILDENAFIL
     Dosage: UNK
     Dates: start: 2016, end: 2016
  2. APIXABAN [Concomitant]
     Active Substance: APIXABAN
     Indication: CARDIAC DISORDER
     Dosage: 2.5 MG, BID
     Dates: start: 20140924
  3. ADEMPAS [Suspect]
     Active Substance: RIOCIGUAT
     Indication: PULMONARY ARTERIAL HYPERTENSION
     Dosage: 0.5 MG, TID
     Dates: start: 20160912, end: 2016
  4. METOPROLOL. [Concomitant]
     Active Substance: METOPROLOL
     Dosage: 1/2 OF 25 MG BID

REACTIONS (11)
  - Emotional disorder [None]
  - Fluid retention [None]
  - Back pain [None]
  - Heart rate increased [None]
  - Arrhythmia [None]
  - Tremor [None]
  - Dissociation [Unknown]
  - Affect lability [None]
  - Weight increased [None]
  - Labelled drug-drug interaction medication error [None]
  - Hypersensitivity [None]
